FAERS Safety Report 18271717 (Version 1)
Quarter: 2020Q3

REPORT INFORMATION
  Report Type: Spontaneous
  Country: US (occurrence: US)
  Receive Date: 20200915
  Receipt Date: 20200915
  Transmission Date: 20201103
  Serious: Yes (Hospitalization)
  Sender: FDA-Public Use
  Company Number: None

PATIENT
  Age: 74 Year
  Sex: Male
  Weight: 70 kg

DRUGS (10)
  1. YESCARTA [Suspect]
     Active Substance: AXICABTAGENE CILOLEUCEL
     Indication: DIFFUSE LARGE B-CELL LYMPHOMA
     Dosage: ?          OTHER FREQUENCY:ONCE;?
     Route: 041
     Dates: start: 20200528, end: 20200528
  2. TOCILIZUMAB (ACTEMRA) 800 MG [Concomitant]
     Dates: start: 20200603, end: 20200603
  3. MEROPENEM (7/7 ? 7/24) [Concomitant]
     Dates: start: 20200707, end: 20200724
  4. LEVETIRACETAM (KEPPRA) TABLET [Concomitant]
     Dates: start: 20200528, end: 20200628
  5. PIPERACILLIN?TAZOBACTAM (ZOSYN) 3.375 GRAM/50 ML [Concomitant]
     Dates: start: 20200531, end: 20200608
  6. ISAVUCONAZONIUM [Concomitant]
     Active Substance: ISAVUCONAZONIUM
     Dates: start: 20200626, end: 20200807
  7. DECADRON 10MG ONCE THEN TAPERING DOSING [Concomitant]
     Dates: start: 20200603, end: 20200619
  8. ACYLOVIR [Concomitant]
     Dates: start: 20200528, end: 20200915
  9. LEVOFLAXACIN [Concomitant]
     Active Substance: LEVOFLOXACIN
     Dates: start: 20200805, end: 20200806
  10. CEFEPINE [Concomitant]
     Dates: start: 20200802, end: 20200804

REACTIONS (9)
  - Orthostatic hypotension [None]
  - Thrombocytopenia [None]
  - Immune effector cell-associated neurotoxicity syndrome [None]
  - Syncope [None]
  - Performance status decreased [None]
  - Disease progression [None]
  - Cytokine release syndrome [None]
  - Klebsiella infection [None]
  - Urinary tract infection [None]

NARRATIVE: CASE EVENT DATE: 20200528
